FAERS Safety Report 10520237 (Version 1)
Quarter: 2014Q4

REPORT INFORMATION
  Report Type: Spontaneous
  Country: US (occurrence: US)
  Receive Date: 20141015
  Receipt Date: 20141015
  Transmission Date: 20150528
  Serious: No
  Sender: FDA-Public Use
  Company Number: US-BAYER-2014-152259

PATIENT
  Age: 81 Year
  Sex: Female
  Weight: 63.49 kg

DRUGS (3)
  1. ALEVE [Suspect]
     Active Substance: NAPROXEN SODIUM
     Indication: PAIN
     Dosage: UNK, PRN
     Route: 048
     Dates: start: 20140501, end: 20140812
  2. ALEVE [Suspect]
     Active Substance: NAPROXEN SODIUM
     Indication: INFLAMMATION
     Dosage: 2 DF IN THE MORNING, 1 DF AT NIGHT
     Route: 048
     Dates: start: 20140812
  3. CENTRUM SILVER [Concomitant]
     Active Substance: VITAMINS

REACTIONS (3)
  - Incorrect drug administration duration [Unknown]
  - Drug ineffective [Unknown]
  - Intentional product misuse [Unknown]

NARRATIVE: CASE EVENT DATE: 20140501
